FAERS Safety Report 14910932 (Version 2)
Quarter: 2018Q2

REPORT INFORMATION
  Report Type: Spontaneous
  Country: US (occurrence: US)
  Receive Date: 20180517
  Receipt Date: 20180608
  Transmission Date: 20180711
  Serious: Yes (Death, Hospitalization)
  Sender: FDA-Public Use
  Company Number: US-ASTRAZENECA-2018SE64379

PATIENT
  Age: 927 Month
  Sex: Female
  Weight: 49.9 kg

DRUGS (4)
  1. SYNTHROID [Concomitant]
     Active Substance: LEVOTHYROXINE SODIUM
     Indication: THYROID DISORDER
     Dosage: DAILY
     Route: 048
  2. IMFINZI [Suspect]
     Active Substance: DURVALUMAB
     Indication: LUNG CARCINOMA CELL TYPE UNSPECIFIED STAGE III
     Dosage: EVERY THREE WEEKS
     Route: 042
     Dates: start: 201804
  3. AMLODIPINE [Concomitant]
     Active Substance: AMLODIPINE BESYLATE
     Indication: HYPERTENSION
     Dosage: DAILY
     Route: 048
  4. HYDROCHLOROTHIAZIDE. [Concomitant]
     Active Substance: HYDROCHLOROTHIAZIDE
     Indication: HYPERTENSION
     Dosage: DAILY
     Route: 048

REACTIONS (8)
  - Death [Fatal]
  - Respiratory rate increased [Not Recovered/Not Resolved]
  - Off label use [Unknown]
  - Pleural effusion [Not Recovered/Not Resolved]
  - Malaise [Not Recovered/Not Resolved]
  - Oxygen saturation decreased [Unknown]
  - Pneumonitis [Not Recovered/Not Resolved]
  - Fatigue [Unknown]

NARRATIVE: CASE EVENT DATE: 201804
